FAERS Safety Report 14778596 (Version 4)
Quarter: 2018Q4

REPORT INFORMATION
  Report Type: Spontaneous
  Country: US (occurrence: US)
  Receive Date: 20180419
  Receipt Date: 20181113
  Transmission Date: 20190204
  Serious: Yes (Death, Hospitalization, Other)
  Sender: FDA-Public Use
  Company Number: US-SA-2018SA110381

PATIENT
  Age: 62 Year
  Sex: Male
  Weight: 79.4 kg

DRUGS (43)
  1. DULOXETINE. [Concomitant]
     Active Substance: DULOXETINE
     Indication: ANAPHYLACTIC REACTION
     Dosage: UNK UNK,QD
     Route: 065
     Dates: start: 20180214, end: 20181103
  2. MYCOPHENOLATE MOFETIL. [Concomitant]
     Active Substance: MYCOPHENOLATE MOFETIL
     Dosage: UNK UNK,BID
     Route: 048
     Dates: start: 20180119, end: 20181103
  3. PROGRAF [Concomitant]
     Active Substance: TACROLIMUS\TACROLIMUS ANHYDROUS
     Dosage: 0.5 MG, BID
     Route: 048
     Dates: start: 20180730
  4. TIKOSYN [Concomitant]
     Active Substance: DOFETILIDE
     Dosage: 1 DF
     Route: 048
     Dates: start: 20180214, end: 20181103
  5. DIPHENHYDRAMINE. [Concomitant]
     Active Substance: DIPHENHYDRAMINE
     Indication: ANAPHYLACTIC REACTION
     Dosage: 25 MG,PRN
     Route: 048
     Dates: start: 20180130, end: 20181103
  6. EPINEPHRINE. [Concomitant]
     Active Substance: EPINEPHRINE
     Indication: ANAPHYLACTIC REACTION
     Dosage: .3 MG,UNK
     Route: 030
     Dates: start: 20180130, end: 20181103
  7. RANITIDINE. [Concomitant]
     Active Substance: RANITIDINE
     Dosage: UNK UNK,BID
     Route: 048
     Dates: start: 20180119, end: 20181103
  8. IRON [Concomitant]
     Active Substance: IRON
     Dosage: 65 MG
     Route: 048
     Dates: start: 20180730, end: 20181103
  9. ALLOPURINOL. [Concomitant]
     Active Substance: ALLOPURINOL
     Dosage: 100 MG
     Route: 048
     Dates: start: 20180730
  10. CHOLESTYRAMINE. [Concomitant]
     Active Substance: CHOLESTYRAMINE
     Dosage: UNK UNK,PRN
     Route: 048
     Dates: start: 20170701, end: 20181103
  11. MULTIVITAMINUM [Concomitant]
     Dosage: 2 DF, QD
     Route: 048
     Dates: start: 20170708, end: 20181103
  12. MYCOPHENOLATE MOFETIL. [Concomitant]
     Active Substance: MYCOPHENOLATE MOFETIL
     Dosage: 250 MG
     Route: 048
     Dates: start: 20180730
  13. SYMBICORT [Concomitant]
     Active Substance: BUDESONIDE\FORMOTEROL FUMARATE DIHYDRATE
     Dosage: UNK UNK,BID
     Route: 065
     Dates: start: 20180119, end: 20181103
  14. CALCITRIOL. [Concomitant]
     Active Substance: CALCITRIOL
     Dosage: 80 MG, 3 TIMES A WEEK
     Route: 048
     Dates: start: 20180730, end: 20181103
  15. PREDNISONE. [Concomitant]
     Active Substance: PREDNISONE
     Dosage: 5 MG
     Route: 048
     Dates: start: 20180730
  16. GUAIFENESIN. [Concomitant]
     Active Substance: GUAIFENESIN
     Dosage: 1 DF, Q4H
     Route: 048
     Dates: start: 20180716, end: 20181103
  17. VITAMIN D3 [Concomitant]
     Active Substance: CHOLECALCIFEROL
     Dosage: 1000 IU,QD
     Route: 048
     Dates: start: 20180119, end: 20181103
  18. PREDNISONE. [Concomitant]
     Active Substance: PREDNISONE
     Dosage: UNK UNK,QOD
     Route: 048
     Dates: start: 20170708, end: 20181103
  19. PROAIR [SALBUTAMOL SULFATE] [Concomitant]
     Dosage: 2 DF, Q4H
     Route: 055
     Dates: start: 20180730, end: 20181103
  20. FABRAZYME [Suspect]
     Active Substance: AGALSIDASE BETA
     Indication: FABRY^S DISEASE
     Dosage: 1.13 MG/KG,QOW
     Route: 041
     Dates: start: 20150119, end: 20181103
  21. WARFARIN [Concomitant]
     Active Substance: WARFARIN
     Dosage: UNK UNK,QD
     Route: 048
     Dates: start: 2018, end: 20181103
  22. NORMAL SALINE [Concomitant]
     Active Substance: SODIUM CHLORIDE
     Indication: FLUSHING
     Dosage: .9 %,UNK
     Route: 041
     Dates: start: 20180130, end: 20181103
  23. CALCITRIOL. [Concomitant]
     Active Substance: CALCITRIOL
     Dosage: .25 UG,QD
     Route: 048
     Dates: start: 20180108, end: 20181103
  24. LEVOTHYROXINE. [Concomitant]
     Active Substance: LEVOTHYROXINE
     Dosage: 50 MG
     Route: 048
     Dates: start: 20180730, end: 20181103
  25. ALLOPURINOL. [Concomitant]
     Active Substance: ALLOPURINOL
     Dosage: UNK UNK,QD
     Route: 048
     Dates: start: 20171222, end: 20181103
  26. LOPERAMIDE [Concomitant]
     Active Substance: LOPERAMIDE
     Dosage: 2 MG, PRN
     Route: 048
     Dates: start: 20180730, end: 20181103
  27. FUROSEMIDE. [Concomitant]
     Active Substance: FUROSEMIDE
     Dosage: 80 MG,BID
     Route: 048
     Dates: start: 20180119, end: 20181103
  28. RANITIDINE. [Concomitant]
     Active Substance: RANITIDINE
     Dosage: 150 MG, QD
     Route: 048
     Dates: start: 20180730
  29. LEVOTHYROXINE. [Concomitant]
     Active Substance: LEVOTHYROXINE
     Dosage: UNK UNK,QD
     Route: 048
     Dates: start: 20180108, end: 20181103
  30. IRON [Concomitant]
     Active Substance: IRON
     Dosage: UNK UNK,QD
     Route: 048
     Dates: start: 20180108, end: 20181103
  31. STERILE WATER [Concomitant]
     Active Substance: WATER
     Dosage: 1 UNK
     Route: 042
     Dates: start: 20180130, end: 20181103
  32. WARFARIN [Concomitant]
     Active Substance: WARFARIN
     Dosage: 4 MG
     Route: 048
     Dates: start: 20180730
  33. LOSARTAN. [Concomitant]
     Active Substance: LOSARTAN
     Dosage: UNK UNK,BID
     Route: 048
     Dates: start: 20180330, end: 20181103
  34. LOSARTAN. [Concomitant]
     Active Substance: LOSARTAN
     Dosage: 12.5 MG, QD
     Route: 048
     Dates: start: 20180730
  35. DULOXETINE. [Concomitant]
     Active Substance: DULOXETINE
     Dosage: 30 MG
     Route: 048
     Dates: start: 20180730
  36. TIKOSYN [Concomitant]
     Active Substance: DOFETILIDE
     Dosage: UNK UNK,BID
     Route: 048
     Dates: start: 20180214, end: 20181103
  37. FUROSEMIDE. [Concomitant]
     Active Substance: FUROSEMIDE
     Dosage: 80 UNK
     Route: 048
     Dates: start: 20180530, end: 20181103
  38. METOPROLOL SUCCINATE. [Concomitant]
     Active Substance: METOPROLOL SUCCINATE
     Dosage: UNK UNK,BID
     Route: 048
     Dates: start: 20180119, end: 20181103
  39. METOPROLOL SUCCINATE. [Concomitant]
     Active Substance: METOPROLOL SUCCINATE
     Dosage: 100 MG, QD
     Route: 048
     Dates: start: 20180730, end: 20181103
  40. SALBUTAMOL SULFATE [Concomitant]
     Active Substance: ALBUTEROL SULFATE
     Dosage: UNK UNK,Q4H
     Route: 065
     Dates: start: 20150213, end: 20181103
  41. PROGRAF [Concomitant]
     Active Substance: TACROLIMUS\TACROLIMUS ANHYDROUS
     Dosage: UNK UNK,QD
     Route: 048
     Dates: start: 20180330, end: 20181103
  42. ALBUTEROL;IPRATROPIUM [Concomitant]
     Dosage: UNK UNK,QID
     Route: 065
     Dates: start: 20180119, end: 20181103
  43. VITAMIN D3 [Concomitant]
     Active Substance: CHOLECALCIFEROL
     Dosage: 2000 IU
     Route: 048
     Dates: start: 20180730

REACTIONS (10)
  - Cardiac failure congestive [Unknown]
  - Atrial fibrillation [Unknown]
  - Presyncope [Not Recovered/Not Resolved]
  - Death [Fatal]
  - Pulse absent [Unknown]
  - Cyanosis [Unknown]
  - Bloody discharge [Unknown]
  - Oedema peripheral [Unknown]
  - Ejection fraction abnormal [Unknown]
  - Weight decreased [Unknown]

NARRATIVE: CASE EVENT DATE: 2018
